FAERS Safety Report 11884697 (Version 1)
Quarter: 2016Q1

REPORT INFORMATION
  Report Type: Spontaneous
  Country: GB (occurrence: GB)
  Receive Date: 20160104
  Receipt Date: 20160104
  Transmission Date: 20160526
  Serious: Yes (Other)
  Sender: FDA-Public Use
  Company Number: GB-ACCORD-036673

PATIENT
  Sex: Female

DRUGS (11)
  1. AMITRIPTYLINE [Suspect]
     Active Substance: AMITRIPTYLINE
     Indication: PRODUCT USED FOR UNKNOWN INDICATION
     Dosage: STRENGTH: 25 MG, AT NIGHT SINCE 4 WEEKS
     Dates: start: 201511
  2. LEVETIRACETAM. [Interacting]
     Active Substance: LEVETIRACETAM
     Indication: PRODUCT USED FOR UNKNOWN INDICATION
     Dates: start: 201512
  3. ACICLOVIR [Concomitant]
     Active Substance: ACYCLOVIR
  4. FLUCONAZOLE. [Concomitant]
     Active Substance: FLUCONAZOLE
  5. ASPARAGINASE [Interacting]
     Active Substance: ASPARAGINASE
     Indication: PRODUCT USED FOR UNKNOWN INDICATION
     Dosage: SMILE REGIMEN
  6. COTRIMOXAZOLE [Concomitant]
     Active Substance: SULFAMETHOXAZOLE\TRIMETHOPRIM
  7. IFOSFAMIDE. [Concomitant]
     Active Substance: IFOSFAMIDE
  8. COCODAMOL [Concomitant]
     Active Substance: ACETAMINOPHEN\CODEINE PHOSPHATE
  9. ETOPOSIDE. [Concomitant]
     Active Substance: ETOPOSIDE
  10. METHOTREXATE [Concomitant]
     Active Substance: METHOTREXATE
  11. DEXAMETHASONE. [Concomitant]
     Active Substance: DEXAMETHASONE

REACTIONS (3)
  - Simple partial seizures [Unknown]
  - Blood alkaline phosphatase increased [Not Recovered/Not Resolved]
  - Drug interaction [Unknown]
